FAERS Safety Report 6210605-3 (Version None)
Quarter: 2009Q2

REPORT INFORMATION
  Report Type: 
  Country: None (occurrence: None)
  Receive Date: 20090601
  Receipt Date: 20090526
  Transmission Date: 20091009
  Serious: Yes (Hospitalization)
  Sender: FDA-Public Use
  Company Number: D0061648A

PATIENT
  Sex: Female
  Weight: 60 kg

DRUGS (4)
  1. LAMICTAL [Suspect]
     Route: 048
  2. CLOBAZAM [Suspect]
     Route: 048
  3. TOPAMAX [Suspect]
     Route: 048
  4. VIMPAT [Suspect]
     Route: 065

REACTIONS (4)
  - INTENTIONAL OVERDOSE [None]
  - NAUSEA [None]
  - SUICIDE ATTEMPT [None]
  - VOMITING [None]
